FAERS Safety Report 11300879 (Version 1)
Quarter: 2015Q3

REPORT INFORMATION
  Report Type: Spontaneous
  Country: US (occurrence: US)
  Receive Date: 20150722
  Receipt Date: 20150722
  Transmission Date: 20151125
  Serious: No
  Sender: FDA-Public Use
  Company Number: US-ELI_LILLY_AND_COMPANY-US201311001097

PATIENT
  Age: 56 Year
  Sex: Female
  Weight: 61.22 kg

DRUGS (10)
  1. HYDROCHLOROTHIAZIDE. [Concomitant]
     Active Substance: HYDROCHLOROTHIAZIDE
  2. BABY ASPIRIN [Concomitant]
     Active Substance: ASPIRIN
  3. EFFIENT [Suspect]
     Active Substance: PRASUGREL HYDROCHLORIDE
     Indication: STENT PLACEMENT
     Dosage: 10 MG, QD
     Route: 048
     Dates: start: 20130930
  4. LISINOPRIL                         /00894002/ [Concomitant]
     Active Substance: LISINOPRIL
  5. ZETIA [Concomitant]
     Active Substance: EZETIMIBE
  6. PLAVIX [Concomitant]
     Active Substance: CLOPIDOGREL BISULFATE
  7. LIVALO [Suspect]
     Active Substance: PITAVASTATIN CALCIUM
     Indication: BLOOD CHOLESTEROL
     Dosage: 2 MG, EACH EVENING
     Dates: start: 20131014
  8. SYNTHROID [Concomitant]
     Active Substance: LEVOTHYROXINE SODIUM
  9. LOSARTAN. [Concomitant]
     Active Substance: LOSARTAN
  10. COREG [Concomitant]
     Active Substance: CARVEDILOL

REACTIONS (6)
  - Contusion [Not Recovered/Not Resolved]
  - Back pain [Recovering/Resolving]
  - Epistaxis [Not Recovered/Not Resolved]
  - Pain in extremity [Not Recovered/Not Resolved]
  - Cough [Unknown]
  - Drug dispensing error [Unknown]
